FAERS Safety Report 8163929-7 (Version None)
Quarter: 2012Q1

REPORT INFORMATION
  Report Type: 
  Country: None (occurrence: None)
  Receive Date: 20120224
  Receipt Date: 20120215
  Transmission Date: 20120608
  Serious: Yes (Hospitalization)
  Sender: FDA-Public Use
  Company Number: US-JNJFOC-20120209055

PATIENT
  Sex: Male
  Weight: 38.9 kg

DRUGS (7)
  1. OMEGA-3 FATTY ACIDS [Concomitant]
  2. REMICADE [Suspect]
     Indication: INFLAMMATORY BOWEL DISEASE
     Route: 042
     Dates: start: 20101104
  3. CALCIUM CARBONATE [Concomitant]
  4. FERROUS SULFATE TAB [Concomitant]
  5. ZYRTEC [Concomitant]
  6. MESALAMINE [Concomitant]
     Route: 048
  7. MULTI-VITAMINS [Concomitant]

REACTIONS (1)
  - POST-TRAUMATIC HEADACHE [None]
